FAERS Safety Report 7636066-5 (Version None)
Quarter: 2011Q3

REPORT INFORMATION
  Report Type: 
  Country: None (occurrence: None)
  Receive Date: 20110726
  Receipt Date: 20110714
  Transmission Date: 20111222
  Serious: Yes (Other)
  Sender: FDA-Public Use
  Company Number: JP-ROCHE-788507

PATIENT
  Age: 79 Year
  Sex: Male

DRUGS (1)
  1. XELODA [Suspect]
     Indication: RECTAL CANCER
     Dosage: NOTE: IT IS ONE ADMINISTERING WEEKLY HOLIDAY MEDICINE, AND COOL THREE FOR TWO WEEKS.
     Route: 048
     Dates: start: 20100101, end: 20100301

REACTIONS (7)
  - GASTROINTESTINAL NECROSIS [None]
  - COLITIS [None]
  - ANASTOMOTIC STENOSIS [None]
  - MYOCARDIAL INFARCTION [None]
  - LARGE INTESTINE PERFORATION [None]
  - PALMAR-PLANTAR ERYTHRODYSAESTHESIA SYNDROME [None]
  - STOMATITIS [None]
